FAERS Safety Report 9098094 (Version 2)
Quarter: 2013Q2

REPORT INFORMATION
  Report Type: Spontaneous
  Country: IN (occurrence: IN)
  Receive Date: 20130212
  Receipt Date: 20130627
  Transmission Date: 20140414
  Serious: Yes (Hospitalization, Other)
  Sender: FDA-Public Use
  Company Number: IN-PFIZER INC-2012082462

PATIENT
  Age: 66 Year
  Sex: Male

DRUGS (1)
  1. SUTENT [Suspect]
     Indication: GASTROINTESTINAL STROMAL TUMOUR
     Dosage: 50 MG, 1X/DAY
     Route: 048
     Dates: start: 20120309, end: 20130615

REACTIONS (9)
  - Asthenia [Not Recovered/Not Resolved]
  - Vomiting [Recovering/Resolving]
  - Dizziness [Recovered/Resolved]
  - Anal fissure [Not Recovered/Not Resolved]
  - Mouth ulceration [Recovered/Resolved]
  - Skin exfoliation [Recovering/Resolving]
  - Blood potassium increased [Unknown]
  - Furuncle [Not Recovered/Not Resolved]
  - Gait disturbance [Unknown]
